FAERS Safety Report 11308829 (Version 1)
Quarter: 2015Q3

REPORT INFORMATION
  Report Type: Spontaneous
  Country: DE (occurrence: DE)
  Receive Date: 20150724
  Receipt Date: 20150724
  Transmission Date: 20151125
  Serious: Yes (Hospitalization)
  Sender: FDA-Public Use
  Company Number: DE-ELI_LILLY_AND_COMPANY-DE201507003878

PATIENT
  Sex: Female

DRUGS (1)
  1. YENTREVE [Suspect]
     Active Substance: DULOXETINE HYDROCHLORIDE
     Indication: INCONTINENCE
     Dosage: 20 MG, UNKNOWN
     Route: 048

REACTIONS (3)
  - Pulmonary embolism [Unknown]
  - Cascade stomach [Not Recovered/Not Resolved]
  - Foreign body [Unknown]

NARRATIVE: CASE EVENT DATE: 201507
